FAERS Safety Report 4679415-2 (Version None)
Quarter: 2005Q2

REPORT INFORMATION
  Report Type: 
  Country: None (occurrence: None)
  Receive Date: 20050602
  Receipt Date: 20050524
  Transmission Date: 20051028
  Serious: Yes (Hospitalization)
  Sender: FDA-Public Use
  Company Number: PHHO2005JP08330

PATIENT
  Age: 58 Year
  Sex: Female
  Weight: 53 kg

DRUGS (8)
  1. DIOVAN [Suspect]
     Indication: HYPERTENSION
     Dosage: 80 MG, QD
     Route: 048
     Dates: start: 20030430
  2. WARFARIN SODIUM [Suspect]
     Dosage: 2 MG, QD
     Route: 048
     Dates: start: 20030430, end: 20050228
  3. DEPAS [Concomitant]
     Indication: ANXIETY DISORDER
  4. ALMARL [Concomitant]
     Indication: HYPERTROPHY
  5. SEDIEL [Concomitant]
     Indication: ANXIETY DISORDER
  6. NORVASC [Concomitant]
     Indication: HYPERTENSION
  7. FLUITRAN [Concomitant]
     Indication: HYPERTENSION
  8. GASTER [Concomitant]
     Indication: GASTRITIS

REACTIONS (5)
  - CEREBRAL HAEMORRHAGE [None]
  - DYSARTHRIA [None]
  - HEMIPARESIS [None]
  - HYPOAESTHESIA [None]
  - SENSORY DISTURBANCE [None]
